FAERS Safety Report 12463951 (Version 1)
Quarter: 2016Q2

REPORT INFORMATION
  Report Type: Spontaneous
  Country: None (occurrence: None)
  Receive Date: 20160613
  Receipt Date: 20160613
  Transmission Date: 20160815
  Serious: Yes (Life-Threatening, Hospitalization, Other)
  Sender: FDA-Public Use
  Company Number: None

PATIENT
  Age: 46 Year
  Sex: Female
  Weight: 70 kg

DRUGS (2)
  1. HALPERIDOL, HALOPERIDOL 5 MG IV [Suspect]
     Active Substance: HALOPERIDOL
     Indication: VOMITING
     Route: 040
  2. ONDANSETRON [Suspect]
     Active Substance: ONDANSETRON

REACTIONS (8)
  - Cyanosis [None]
  - Vomiting [None]
  - Electrocardiogram QT prolonged [None]
  - Hypokalaemia [None]
  - Hypomagnesaemia [None]
  - Bradycardia [None]
  - Torsade de pointes [None]
  - Pulse absent [None]

NARRATIVE: CASE EVENT DATE: 20160608
